FAERS Safety Report 9867352 (Version 1)
Quarter: 2014Q1

REPORT INFORMATION
  Report Type: Spontaneous
  Country: US (occurrence: US)
  Receive Date: 20140204
  Receipt Date: 20140204
  Transmission Date: 20141002
  Serious: No
  Sender: FDA-Public Use
  Company Number: US-009507513-1402USA000855

PATIENT
  Sex: Male

DRUGS (6)
  1. ZETIA [Suspect]
     Indication: BLOOD CHOLESTEROL INCREASED
     Dosage: 10 MG, QD
     Route: 048
  2. TRILIPIX [Concomitant]
  3. TOPROL XL TABLETS [Concomitant]
     Route: 048
  4. ASPIRIN [Concomitant]
     Dosage: BABY ASPIRIN
     Route: 048
  5. LISINOPRIL [Concomitant]
     Route: 048
  6. SYNTHROID [Concomitant]

REACTIONS (1)
  - Pain in extremity [Unknown]
